FAERS Safety Report 17136534 (Version 1)
Quarter: 2019Q4

REPORT INFORMATION
  Report Type: Spontaneous
  Country: US (occurrence: US)
  Receive Date: 20191210
  Receipt Date: 20191210
  Transmission Date: 20200122
  Serious: No
  Sender: FDA-Public Use
  Company Number: US-SA-2019SA340456

PATIENT
  Age: 87 Year
  Sex: Male

DRUGS (1)
  1. LANTUS SOLOSTAR [Suspect]
     Active Substance: INSULIN GLARGINE
     Indication: TYPE 2 DIABETES MELLITUS
     Dosage: 15UNITS IN MORNING AND 10UNITS IN NIGHT, BID
     Route: 065
     Dates: start: 201906

REACTIONS (2)
  - Blood glucose fluctuation [Unknown]
  - Inappropriate schedule of product administration [Unknown]
